FAERS Safety Report 20735737 (Version 3)
Quarter: 2022Q2

REPORT INFORMATION
  Report Type: Report from Study
  Country: US (occurrence: US)
  Receive Date: 20220421
  Receipt Date: 20220518
  Transmission Date: 20220721
  Serious: Yes (Hospitalization)
  Sender: FDA-Public Use
  Company Number: US-JNJFOC-20220429748

PATIENT
  Age: 63 Year
  Sex: Male
  Weight: 64.922 kg

DRUGS (9)
  1. DARATUMUMAB [Suspect]
     Active Substance: DARATUMUMAB
     Indication: Plasma cell myeloma
     Dosage: WEEKLY FOR WEEKS 1-8, EVERY 2 WEEKS FOR WEEKS 9-24, EVERY MONTH FOR WEEKS 25 UNTIL PROGRESSION.?LAST
     Route: 058
     Dates: start: 20210505
  2. POMALIDOMIDE [Suspect]
     Active Substance: POMALIDOMIDE
     Indication: Plasma cell myeloma
     Dosage: DAILY FOR DAYS 1-21 IN 28-DAY CYCLE?LAST DOSE: 11-APR-2022
     Route: 048
     Dates: start: 20210505
  3. ASPIRIN [Concomitant]
     Active Substance: ASPIRIN
     Route: 048
     Dates: start: 20210728
  4. COREG [Concomitant]
     Active Substance: CARVEDILOL
     Route: 048
     Dates: start: 20210802
  5. VITAMIN D3 [Concomitant]
     Active Substance: CHOLECALCIFEROL
     Route: 048
     Dates: start: 20220427
  6. NEURONTIN [Concomitant]
     Active Substance: GABAPENTIN
     Route: 048
     Dates: start: 20211215
  7. LOPERAMIDE [Concomitant]
     Active Substance: LOPERAMIDE
     Route: 048
  8. PROTONIX [Concomitant]
     Active Substance: PANTOPRAZOLE SODIUM
     Route: 048
     Dates: start: 20210922
  9. VALTREX [Concomitant]
     Active Substance: VALACYCLOVIR HYDROCHLORIDE
     Route: 048
     Dates: start: 20211117

REACTIONS (3)
  - Pneumonia [Recovered/Resolved]
  - Alanine aminotransferase increased [Recovered/Resolved]
  - Aspartate aminotransferase increased [Recovered/Resolved]

NARRATIVE: CASE EVENT DATE: 20220412
